FAERS Safety Report 16741466 (Version 4)
Quarter: 2019Q4

REPORT INFORMATION
  Report Type: Spontaneous
  Country: BE (occurrence: BE)
  Receive Date: 20190826
  Receipt Date: 20191002
  Transmission Date: 20200122
  Serious: Yes (Hospitalization, Other)
  Sender: FDA-Public Use
  Company Number: BE-PFIZER INC-2019358540

PATIENT
  Age: 70 Year
  Sex: Female

DRUGS (5)
  1. PANTOMED [Concomitant]
     Dosage: UNK (40 OF UNSPECIFIED UNITS)
     Route: 048
  2. ALDACTONE [Suspect]
     Active Substance: SPIRONOLACTONE
     Dosage: UNK (25 OF UNSPECIFIED UNITS)
     Route: 048
     Dates: start: 201808, end: 20190817
  3. ELIQUIS [Concomitant]
     Active Substance: APIXABAN
     Dosage: UNK (5 OF UNSPECIFIED UNITS)
     Route: 048
  4. EMCONCOR [Concomitant]
     Active Substance: BISOPROLOL FUMARATE
     Dosage: UNK (5 OF UNSPECIFIED UNITS)
     Route: 048
  5. L-THYROXINE [Concomitant]
     Active Substance: LEVOTHYROXINE
     Dosage: UNK (75 OF UNSPECIFIED UNITS)
     Route: 048

REACTIONS (2)
  - Pemphigoid [Recovering/Resolving]
  - Pemphigus [Recovering/Resolving]

NARRATIVE: CASE EVENT DATE: 20190701
